FAERS Safety Report 17356314 (Version 1)
Quarter: 2020Q1

REPORT INFORMATION
  Report Type: Spontaneous
  Country: US (occurrence: US)
  Receive Date: 20200131
  Receipt Date: 20200131
  Transmission Date: 20200409
  Serious: Yes (Other)
  Sender: FDA-Public Use
  Company Number: US-TEVA-2020-US-1173845

PATIENT
  Sex: Female

DRUGS (1)
  1. NORETHINDRONE ACETATE/ETHINYL ESTRADIOL/FERROUS FUMARATE TABLETS [Suspect]
     Active Substance: ETHINYL ESTRADIOL\FERROUS FUMARATE\NORETHINDRONE ACETATE
     Indication: HORMONE REPLACEMENT THERAPY
     Route: 065

REACTIONS (5)
  - Product prescribing error [Unknown]
  - Muscle spasms [Unknown]
  - Drug ineffective [Unknown]
  - Product use in unapproved indication [Unknown]
  - Haemorrhage [Recovered/Resolved]
